FAERS Safety Report 16395950 (Version 1)
Quarter: 2019Q2

REPORT INFORMATION
  Report Type: Spontaneous
  Country: SE (occurrence: SE)
  Receive Date: 20190605
  Receipt Date: 20190605
  Transmission Date: 20190711
  Serious: Yes (Other)
  Sender: FDA-Public Use
  Company Number: PHHY2019SE125853

PATIENT
  Age: 16 Year
  Sex: Female

DRUGS (4)
  1. GABAPENTIN. [Suspect]
     Active Substance: GABAPENTIN
     Dosage: UNK, TRAPPADES UPP TILL MAXIMAL DOS 1+1+2 (2400 MG /D) TILL DEN 11/12
     Route: 048
  2. GABAPENTIN. [Suspect]
     Active Substance: GABAPENTIN
     Dosage: UNK, 20181218, BORJADE NEDTRAPPNING AV DOS. UTSATT 2019-01-01
     Route: 048
  3. GABAPENTIN. [Suspect]
     Active Substance: GABAPENTIN
     Indication: PAIN
     Dosage: UNK,26/9 300 MG EN GANG DAGLIGEN I UPPTRAPPANDE DOS
     Route: 048
  4. GABAPENTIN. [Suspect]
     Active Substance: GABAPENTIN
     Dosage: UNK, SUCCESIVT OKNING TILL 19/10 TILL 600 MG 1X3, DAREFTER FORTSATT UPPTRAPPANDE DOS
     Route: 048

REACTIONS (3)
  - Pancreatitis [Recovered/Resolved]
  - Pleurisy [Recovered/Resolved]
  - Muscle spasms [Recovered/Resolved]

NARRATIVE: CASE EVENT DATE: 20181010
